FAERS Safety Report 8437869-X (Version None)
Quarter: 2012Q2

REPORT INFORMATION
  Report Type: 
  Country: None (occurrence: None)
  Receive Date: 20120614
  Receipt Date: 20120522
  Transmission Date: 20120825
  Serious: No
  Sender: FDA-Public Use
  Company Number: US-AMGEN-USASP2012031963

PATIENT
  Sex: Female

DRUGS (7)
  1. CENTRUM SILVER                     /01292501/ [Concomitant]
  2. OMEPRAZOLE [Concomitant]
  3. ZYRTEC [Concomitant]
  4. VITAMIN D [Concomitant]
  5. CALCIUM [Concomitant]
  6. PROLIA [Suspect]
     Indication: OSTEOPOROSIS POSTMENOPAUSAL
     Dosage: 60 MG, Q6MO
     Dates: start: 20111201
  7. CELEXA [Concomitant]

REACTIONS (5)
  - TOOTH FRACTURE [None]
  - DENTAL CARIES [None]
  - TOOTHACHE [None]
  - PAIN [None]
  - VISUAL ACUITY REDUCED [None]
